FAERS Safety Report 5669861-2 (Version None)
Quarter: 2008Q1

REPORT INFORMATION
  Report Type: 
  Country: None (occurrence: None)
  Receive Date: 20080314
  Receipt Date: 20080314
  Transmission Date: 20080703
  Serious: Yes (Hospitalization)
  Sender: FDA-Public Use
  Company Number: None

PATIENT
  Sex: Male
  Weight: 99 kg

DRUGS (1)
  1. TEMOZOLOMIDE [Suspect]
     Dosage: 200 MG

REACTIONS (5)
  - HEADACHE [None]
  - NAUSEA [None]
  - PALPITATIONS [None]
  - TREATMENT NONCOMPLIANCE [None]
  - VOMITING [None]
